FAERS Safety Report 18183248 (Version 2)
Quarter: 2020Q3

REPORT INFORMATION
  Report Type: Report from Study
  Country: FR (occurrence: FR)
  Receive Date: 20200821
  Receipt Date: 20200911
  Transmission Date: 20201103
  Serious: Yes (Other)
  Sender: FDA-Public Use
  Company Number: FR-US-PROVELL PHARMACEUTICALS LLC-9180361

PATIENT
  Age: 38 Year
  Sex: Female

DRUGS (5)
  1. PROVAMES [Concomitant]
     Active Substance: ESTRADIOL
     Indication: PRODUCT USED FOR UNKNOWN INDICATION
  2. GANIRELIX [Concomitant]
     Active Substance: GANIRELIX
     Indication: PRODUCT USED FOR UNKNOWN INDICATION
  3. LEVOTHYROX [Suspect]
     Active Substance: LEVOTHYROXINE
     Indication: ENDOMETRIOSIS
  4. LEVOTHYROX [Suspect]
     Active Substance: LEVOTHYROXINE
     Dosage: DOSE REDUCED
  5. BEMFOLA [Concomitant]
     Active Substance: FOLLITROPIN
     Indication: PRODUCT USED FOR UNKNOWN INDICATION

REACTIONS (10)
  - Abdominal distension [Unknown]
  - Amenorrhoea [Unknown]
  - Nausea [Unknown]
  - Hot flush [Unknown]
  - Off label use [Unknown]
  - Abortion spontaneous [Unknown]
  - Drug intolerance [Unknown]
  - Maternal exposure during pregnancy [Unknown]
  - Aphonia [Unknown]
  - Abdominal pain upper [Unknown]

NARRATIVE: CASE EVENT DATE: 20190516
